FAERS Safety Report 14557962 (Version 2)
Quarter: 2018Q2

REPORT INFORMATION
  Report Type: Report from Study
  Country: None (occurrence: NL)
  Receive Date: 20180221
  Receipt Date: 20180412
  Transmission Date: 20180711
  Serious: Yes (Hospitalization, Other)
  Sender: FDA-Public Use
  Company Number: NL-ABBVIE-18K-114-2263257-00

PATIENT
  Age: 1 Year
  Sex: Male
  Weight: 8.5 kg

DRUGS (10)
  1. SYNAGIS [Suspect]
     Active Substance: PALIVIZUMAB
     Indication: ANTIVIRAL PROPHYLAXIS
     Route: 030
     Dates: start: 20171001, end: 20171001
  2. SYNAGIS [Suspect]
     Active Substance: PALIVIZUMAB
     Route: 030
  3. SYNAGIS [Suspect]
     Active Substance: PALIVIZUMAB
     Route: 030
     Dates: start: 20171127, end: 20171127
  4. SYNAGIS [Suspect]
     Active Substance: PALIVIZUMAB
     Indication: IMMUNOSUPPRESSION
     Route: 030
     Dates: start: 20171030, end: 20171030
  5. AMOXICILLIN/CLAVULANIC ACID [Concomitant]
     Active Substance: AMOXICILLIN\CLAVULANIC ACID
     Indication: INFECTION
     Route: 048
     Dates: start: 20171205, end: 20171212
  6. SYNAGIS [Suspect]
     Active Substance: PALIVIZUMAB
     Route: 030
  7. NYSTATIN. [Concomitant]
     Active Substance: NYSTATIN
     Indication: CANDIDA INFECTION
     Route: 048
     Dates: start: 20171205, end: 20171212
  8. SYNAGIS [Suspect]
     Active Substance: PALIVIZUMAB
     Route: 030
  9. SYNAGIS [Suspect]
     Active Substance: PALIVIZUMAB
     Route: 030
     Dates: start: 20171227, end: 20171227
  10. SYNAGIS [Suspect]
     Active Substance: PALIVIZUMAB
     Route: 030
     Dates: start: 20180122, end: 20180122

REACTIONS (12)
  - Blood creatinine decreased [Unknown]
  - Platelet count decreased [Unknown]
  - Blood immunoglobulin G decreased [Unknown]
  - Haemoglobin decreased [Unknown]
  - Diarrhoea [Not Recovered/Not Resolved]
  - Pyrexia [Not Recovered/Not Resolved]
  - Weight decreased [Not Recovered/Not Resolved]
  - Transfusion [Unknown]
  - Transfusion [Recovered/Resolved]
  - Vomiting [Not Recovered/Not Resolved]
  - C-reactive protein increased [Unknown]
  - Blood albumin decreased [Unknown]

NARRATIVE: CASE EVENT DATE: 201712
